FAERS Safety Report 5282713-5 (Version None)
Quarter: 2007Q1

REPORT INFORMATION
  Report Type: 
  Country: None (occurrence: None)
  Receive Date: 20061226
  Receipt Date: 20060814
  Transmission Date: 20070707
  Serious: No
  Sender: FDA-Public Use
  Company Number: PHEH2006US10405

PATIENT
  Age: 82 Year
  Sex: Female

DRUGS (4)
  1. ENABLEX [Suspect]
     Dates: start: 20060806, end: 20060812
  2. GLIPIZIDE [Concomitant]
  3. SYNTHROID [Concomitant]
  4. VITAMINS (NO INGREDIENTS/SUBSTANCES) [Concomitant]

REACTIONS (3)
  - LACRIMATION INCREASED [None]
  - POLLAKIURIA [None]
  - RHINORRHOEA [None]
